FAERS Safety Report 7202559-8 (Version None)
Quarter: 2010Q4

REPORT INFORMATION
  Report Type: 
  Country: None (occurrence: None)
  Receive Date: 20101229
  Receipt Date: 20101216
  Transmission Date: 20110411
  Serious: Yes (Other)
  Sender: FDA-Public Use
  Company Number: JP-MERCK-1012USA02809

PATIENT
  Age: 42 Year
  Sex: Female

DRUGS (5)
  1. COSOPT [Suspect]
     Indication: GLAUCOMA
     Route: 047
  2. TAFLUPROST [Concomitant]
     Indication: GLAUCOMA
     Dosage: ONE DROP TO EACH EYE PER DOSE
     Route: 047
     Dates: start: 20091105
  3. LIVOSTIN [Concomitant]
     Indication: CONJUNCTIVITIS ALLERGIC
     Dosage: ONE DROP TO EACH EYE PER DOSE
     Route: 047
     Dates: start: 20090903
  4. HYALEIN [Concomitant]
     Indication: KERATOCONJUNCTIVITIS SICCA
     Dosage: ONE DROP TO EACH EYE PER DOSE
     Route: 047
     Dates: start: 20090903
  5. SANCOBA [Concomitant]
     Indication: ASTHENOPIA
     Dosage: ONE DROP TO EACH EYE PER DOSE
     Route: 047
     Dates: start: 20090509

REACTIONS (2)
  - OROPHARYNGEAL DISCOMFORT [None]
  - PALPITATIONS [None]
